FAERS Safety Report 5146676-5 (Version None)
Quarter: 2006Q4

REPORT INFORMATION
  Report Type: 
  Country: None (occurrence: None)
  Receive Date: 20061109
  Receipt Date: 20061027
  Transmission Date: 20070319
  Serious: Yes (Disabling)
  Sender: FDA-Public Use
  Company Number: PHBS2006CH16813

PATIENT
  Age: 72 Year
  Sex: Female

DRUGS (2)
  1. AREDIA [Suspect]
     Indication: METASTASES TO BONE
     Route: 042
  2. ZOMETA [Suspect]
     Indication: METASTASES TO BONE
     Route: 042

REACTIONS (4)
  - MANDIBULECTOMY [None]
  - OSTEONECROSIS [None]
  - PATHOLOGICAL FRACTURE [None]
  - WOUND DEBRIDEMENT [None]
